FAERS Safety Report 12112450 (Version 1)
Quarter: 2016Q1

REPORT INFORMATION
  Report Type: Spontaneous
  Country: KR (occurrence: KR)
  Receive Date: 20160225
  Receipt Date: 20160225
  Transmission Date: 20160526
  Serious: Yes (Other)
  Sender: FDA-Public Use
  Company Number: KR-AMGEN-KORCT2016022135

PATIENT
  Age: 54 Year
  Sex: Male
  Weight: 66 kg

DRUGS (20)
  1. G-LASTA [Suspect]
     Active Substance: PEGFILGRASTIM
     Dosage: 6 MG, 1X/3WEEKS
     Route: 058
     Dates: start: 20150830, end: 20150830
  2. RITUXIMAB [Concomitant]
     Active Substance: RITUXIMAB
     Dosage: 620 MG, UNK
     Route: 042
     Dates: start: 20150828, end: 20150828
  3. HEPARIN [Concomitant]
     Active Substance: HEPARIN SODIUM
     Dosage: 500 IU/ML
     Route: 042
     Dates: start: 20150801, end: 20150924
  4. CYCLOPHOSPHAMIDE. [Concomitant]
     Active Substance: CYCLOPHOSPHAMIDE
     Dosage: 1230 MG, UNK
     Route: 042
     Dates: start: 20150828, end: 20150828
  5. BARACLUDE [Concomitant]
     Active Substance: ENTECAVIR
     Dosage: 0.5 MG, UNK
     Route: 048
     Dates: start: 20150801, end: 20150924
  6. DOXORUBICIN [Concomitant]
     Active Substance: DOXORUBICIN
     Dosage: 82 MG, UNK
     Route: 042
     Dates: start: 20150730, end: 20150730
  7. PREDNISOLONE. [Concomitant]
     Active Substance: PREDNISOLONE
     Dosage: 100 MG, UNK
     Route: 048
     Dates: start: 20150801, end: 20150924
  8. RITUXIMAB [Concomitant]
     Active Substance: RITUXIMAB
     Dosage: 620 MG, UNK
     Route: 042
     Dates: start: 20150730, end: 20150730
  9. DOXORUBICIN [Concomitant]
     Active Substance: DOXORUBICIN
     Dosage: 82 MG, UNK
     Route: 042
     Dates: start: 20150828, end: 20150828
  10. PREDNISOLONE. [Concomitant]
     Active Substance: PREDNISOLONE
     Dosage: 100 MG, UNK
     Route: 048
     Dates: start: 20150828, end: 20150828
  11. EMEND [Concomitant]
     Active Substance: APREPITANT
     Dosage: 80 MG, UNK
     Route: 048
     Dates: start: 20150801, end: 20150924
  12. SODIUM CHLORIDE. [Concomitant]
     Active Substance: SODIUM CHLORIDE
     Dosage: 0.5 G, UNK
     Route: 042
     Dates: start: 20150830, end: 20150830
  13. MEGACE ORAL SUSPENSION [Concomitant]
     Dosage: 20 ML, UNK
     Route: 048
     Dates: start: 20150830, end: 20150830
  14. G-LASTA [Suspect]
     Active Substance: PEGFILGRASTIM
     Indication: FEBRILE NEUTROPENIA
     Dosage: 6 MG, 1X/3WEEKS
     Route: 058
     Dates: start: 20150801, end: 20150801
  15. VINCRISTINE [Concomitant]
     Active Substance: VINCRISTINE
     Dosage: 2 MG, UNK
     Route: 042
     Dates: start: 20150730, end: 20150730
  16. CYCLOPHOSPHAMIDE. [Concomitant]
     Active Substance: CYCLOPHOSPHAMIDE
     Dosage: 1230 MG, UNK
     Route: 042
     Dates: start: 20150730, end: 20150730
  17. VINCRISTINE [Concomitant]
     Active Substance: VINCRISTINE
     Dosage: 1 MG, UNK
     Route: 042
     Dates: start: 20150828, end: 20150828
  18. PREDNISOLONE. [Concomitant]
     Active Substance: PREDNISOLONE
     Dosage: 100 MG, UNK
     Route: 048
     Dates: start: 20150730, end: 20150730
  19. PAMISOL                            /00604101/ [Concomitant]
     Dosage: 500 ML, UNK
     Route: 042
     Dates: start: 20150830, end: 20150830
  20. LANSTON [Concomitant]
     Active Substance: LANSOPRAZOLE
     Dosage: 15 MG, UNK
     Route: 048
     Dates: start: 20150801, end: 20150801

REACTIONS (1)
  - Neutropenia [Recovered/Resolved]

NARRATIVE: CASE EVENT DATE: 20150904
